FAERS Safety Report 24765166 (Version 1)
Quarter: 2024Q4

REPORT INFORMATION
  Report Type: Report from Study
  Country: US (occurrence: US)
  Receive Date: 20241223
  Receipt Date: 20241223
  Transmission Date: 20250114
  Serious: Yes (Death, Hospitalization)
  Sender: BAYER HEALTHCARE PHARMACEUTICALS INC.
  Company Number: US-BAYER-2024A169588

PATIENT
  Age: 74 Year
  Sex: Female
  Weight: 54.422 kg

DRUGS (25)
  1. ADEMPAS [Suspect]
     Active Substance: RIOCIGUAT
     Indication: Pulmonary arterial hypertension
     Dosage: UNK
     Dates: start: 20201110
  2. ADEMPAS [Suspect]
     Active Substance: RIOCIGUAT
     Indication: Pulmonary arterial hypertension
     Dosage: 2.5 MG, TID
     Route: 048
  3. TYLENOL [Concomitant]
     Active Substance: ACETAMINOPHEN
  4. POTASSIUM CHLORIDE [Concomitant]
     Active Substance: POTASSIUM CHLORIDE
  5. ALLEGRA ALLERGY [Concomitant]
     Active Substance: FEXOFENADINE HYDROCHLORIDE
  6. WARFARIN SODIUM [Concomitant]
     Active Substance: WARFARIN SODIUM
  7. SODIUM CHLORIDE [Concomitant]
     Active Substance: SODIUM CHLORIDE
  8. METOLAZONE [Concomitant]
     Active Substance: METOLAZONE
  9. ALLOPURINOL [Concomitant]
     Active Substance: ALLOPURINOL
  10. UPTRAVI [Concomitant]
     Active Substance: SELEXIPAG
  11. OXYGEN [Concomitant]
     Active Substance: OXYGEN
  12. PREDNISONE [Concomitant]
     Active Substance: PREDNISONE
  13. REMODULIN [Concomitant]
     Active Substance: TREPROSTINIL
  14. DIGOXIN [Concomitant]
     Active Substance: DIGOXIN
  15. SPIRONOLACTONE AND HYDROCHLOROTHIAZIDE [Concomitant]
     Active Substance: HYDROCHLOROTHIAZIDE\SPIRONOLACTONE
  16. TORSEMIDE [Concomitant]
     Active Substance: TORSEMIDE
  17. AMBRISENTAN [Concomitant]
     Active Substance: AMBRISENTAN
  18. OXYCODONE AND ACETAMINOPHEN [Concomitant]
     Active Substance: ACETAMINOPHEN\OXYCODONE HYDROCHLORIDE
  19. FERROUS SULFATE [Concomitant]
     Active Substance: FERROUS SULFATE
  20. METOPROLOL SUCCINATE [Concomitant]
     Active Substance: METOPROLOL SUCCINATE
  21. TADALAFIL [Concomitant]
     Active Substance: TADALAFIL
  22. STERILE DILUENT FOR ALLERGENIC EXTRACT [Concomitant]
  23. FUROSEMIDE [Concomitant]
     Active Substance: FUROSEMIDE
  24. POTASSIUM ACETATE [Concomitant]
     Active Substance: POTASSIUM ACETATE
  25. SPIRONOLACTONE [Concomitant]
     Active Substance: SPIRONOLACTONE

REACTIONS (4)
  - Death [Fatal]
  - Cardiac failure acute [None]
  - Hospitalisation [None]
  - Malaise [None]

NARRATIVE: CASE EVENT DATE: 20241125
